FAERS Safety Report 26007936 (Version 1)
Quarter: 2025Q4

REPORT INFORMATION
  Report Type: Spontaneous
  Country: US (occurrence: US)
  Receive Date: 20251106
  Receipt Date: 20251106
  Transmission Date: 20260117
  Serious: No
  Sender: GLAUKOS
  Company Number: US-GLK-000700

PATIENT
  Age: 44 Year
  Sex: Female

DRUGS (13)
  1. PHOTREXA VISCOUS [Suspect]
     Active Substance: RIBOFLAVIN 5^-PHOSPHATE SODIUM
     Indication: Keratoconus
     Dosage: OPERATIVE EYE (OS)
     Route: 047
     Dates: start: 20251013, end: 20251013
  2. PHOTREXA [Suspect]
     Active Substance: RIBOFLAVIN 5^-PHOSPHATE SODIUM
     Indication: Keratoconus
     Dosage: OPERATIVE EYE (OS)
     Route: 047
     Dates: start: 20251013, end: 20251013
  3. PREDNISOLONE ACETATE [Concomitant]
     Active Substance: PREDNISOLONE ACETATE
     Indication: Product used for unknown indication
     Dosage: EVERY 4 HOURS LEFT EYE (OS)
     Route: 047
  4. PREDNISOLONE ACETATE [Concomitant]
     Active Substance: PREDNISOLONE ACETATE
     Indication: Product used for unknown indication
     Dosage: LEFT EYE (OS)
     Route: 047
  5. PREDNISOLONE ACETATE [Concomitant]
     Active Substance: PREDNISOLONE ACETATE
     Indication: Product used for unknown indication
     Dosage: LEFT EYE (OS)
     Route: 047
  6. PREDNISOLONE ACETATE [Concomitant]
     Active Substance: PREDNISOLONE ACETATE
     Indication: Product used for unknown indication
     Dosage: LEFT EYE (OS)
     Route: 047
  7. Artificial tears [Concomitant]
     Indication: Product used for unknown indication
     Dosage: LEFT EYE (OS)
     Route: 047
  8. Artificial tears [Concomitant]
     Indication: Product used for unknown indication
     Dosage: LEFT EYE (OS)
     Route: 047
  9. APAP [Concomitant]
     Active Substance: ACETAMINOPHEN
     Indication: Product used for unknown indication
  10. CODEINE PHOSPHATE [Concomitant]
     Active Substance: CODEINE PHOSPHATE
  11. Klarity (glycerin 1%) [Concomitant]
     Indication: Product used for unknown indication
     Dosage: LEFT EYE (OS)
  12. Proparacaine 0.5% [Concomitant]
     Indication: Product used for unknown indication
     Route: 047
  13. vigamox qid [Concomitant]
     Indication: Product used for unknown indication
     Route: 047

REACTIONS (6)
  - Corneal oedema [Not Recovered/Not Resolved]
  - Corneal opacity [Not Recovered/Not Resolved]
  - Eye pain [Recovered/Resolved]
  - Photophobia [Unknown]
  - Vision blurred [Unknown]
  - Headache [Unknown]

NARRATIVE: CASE EVENT DATE: 20251013
